FAERS Safety Report 15723073 (Version 1)
Quarter: 2018Q4

REPORT INFORMATION
  Report Type: Spontaneous
  Country: ES (occurrence: ES)
  Receive Date: 20181214
  Receipt Date: 20181214
  Transmission Date: 20190205
  Serious: Yes (Other)
  Sender: FDA-Public Use
  Company Number: ES-IPSEN BIOPHARMACEUTICALS, INC.-2018-19232

PATIENT
  Age: 66 Year
  Sex: Male

DRUGS (23)
  1. ZALTRAP [Suspect]
     Active Substance: ZIV-AFLIBERCEPT
     Dosage: UNK
     Route: 065
     Dates: start: 20180326, end: 20180326
  2. FLUOROURACILO ACCORD [Suspect]
     Active Substance: FLUOROURACIL
     Dosage: UNK
     Route: 065
     Dates: start: 20150311, end: 20150311
  3. ZARATOR [Concomitant]
     Active Substance: ATORVASTATIN CALCIUM
  4. ADIRO [Concomitant]
     Active Substance: ASPIRIN
  5. ONIVYDE [Suspect]
     Active Substance: IRINOTECAN HYDROCHLORIDE
     Indication: PRODUCT USED FOR UNKNOWN INDICATION
     Dosage: UNK
     Route: 065
     Dates: start: 20140918, end: 20140918
  6. ONIVYDE [Suspect]
     Active Substance: IRINOTECAN HYDROCHLORIDE
     Dosage: UNK
     Route: 065
     Dates: start: 20150311, end: 20150311
  7. ONIVYDE [Suspect]
     Active Substance: IRINOTECAN HYDROCHLORIDE
     Dosage: UNK
     Route: 065
     Dates: start: 20171002, end: 20171002
  8. ZALTRAP [Suspect]
     Active Substance: ZIV-AFLIBERCEPT
     Indication: PRODUCT USED FOR UNKNOWN INDICATION
     Dosage: UNK
     Route: 065
     Dates: start: 20140918, end: 20140918
  9. ZALTRAP [Suspect]
     Active Substance: ZIV-AFLIBERCEPT
     Dosage: UNK
     Route: 065
     Dates: start: 20160427, end: 20160427
  10. FLUOROURACILO ACCORD [Suspect]
     Active Substance: FLUOROURACIL
     Dosage: UNK
     Route: 065
     Dates: start: 20160427, end: 20160427
  11. FLUOROURACILO ACCORD [Suspect]
     Active Substance: FLUOROURACIL
     Dosage: UNK
     Route: 065
     Dates: start: 20171002, end: 20171002
  12. TN UNSPECIFIED [Suspect]
     Active Substance: TROLNITRATE
     Dosage: UNK
     Route: 065
     Dates: start: 20171002, end: 20171002
  13. TN UNSPECIFIED [Suspect]
     Active Substance: TROLNITRATE
     Indication: PRODUCT USED FOR UNKNOWN INDICATION
     Dosage: UNK
     Route: 065
     Dates: start: 20140918, end: 20140918
  14. FLUOROURACILO ACCORD [Suspect]
     Active Substance: FLUOROURACIL
     Indication: PRODUCT USED FOR UNKNOWN INDICATION
     Dosage: UNK
     Route: 065
     Dates: start: 20140918, end: 20140918
  15. TN UNSPECIFIED [Suspect]
     Active Substance: TROLNITRATE
     Dosage: UNK
     Route: 065
     Dates: start: 20160427, end: 20160427
  16. ONIVYDE [Suspect]
     Active Substance: IRINOTECAN HYDROCHLORIDE
     Dosage: UNK
     Route: 065
     Dates: start: 20160427, end: 20160427
  17. ZALTRAP [Suspect]
     Active Substance: ZIV-AFLIBERCEPT
     Dosage: UNK
     Route: 065
     Dates: start: 20150311, end: 20150311
  18. TN UNSPECIFIED [Suspect]
     Active Substance: TROLNITRATE
     Dosage: UNK
     Route: 065
     Dates: start: 20150311, end: 20150311
  19. TN UNSPECIFIED [Suspect]
     Active Substance: TROLNITRATE
     Dosage: UNK
     Route: 065
     Dates: start: 20180326, end: 20180326
  20. ONIVYDE [Suspect]
     Active Substance: IRINOTECAN HYDROCHLORIDE
     Dosage: UNK
     Route: 065
     Dates: start: 20180326, end: 20180326
  21. ZALTRAP [Suspect]
     Active Substance: ZIV-AFLIBERCEPT
     Dosage: UNK
     Route: 065
     Dates: start: 20171002, end: 20171002
  22. FLUOROURACILO ACCORD [Suspect]
     Active Substance: FLUOROURACIL
     Dosage: UNK
     Route: 065
     Dates: start: 20180326, end: 20180326
  23. UNI-MASDIL [Concomitant]

REACTIONS (4)
  - Thrombosis [Recovered/Resolved]
  - Hypertension [Unknown]
  - Proteinuria [Unknown]
  - Epistaxis [Unknown]

NARRATIVE: CASE EVENT DATE: 201607
